FAERS Safety Report 8729838 (Version 2)
Quarter: 2012Q4

REPORT INFORMATION
  Report Type: 
  Country: KR (occurrence: KR)
  Receive Date: 20120817
  Receipt Date: 20120910
  Transmission Date: 20130627
  Serious: Yes (Other)
  Sender: FDA-Public Use
  Company Number: KR-ELI_LILLY_AND_COMPANY-KR201208004035

PATIENT
  Age: 74 Year
  Sex: Female

DRUGS (1)
  1. FORSTEO [Suspect]
     Indication: LUMBAR VERTEBRAL FRACTURE
     Dosage: UNK, unknown
     Route: 058
     Dates: start: 20120618

REACTIONS (4)
  - Behavioural and psychiatric symptoms of dementia [Recovered/Resolved]
  - Delirium [Recovered/Resolved]
  - Hallucination, visual [Recovered/Resolved]
  - Off label use [Not Recovered/Not Resolved]
